FAERS Safety Report 24120235 (Version 1)
Quarter: 2024Q3

REPORT INFORMATION
  Report Type: Spontaneous
  Country: US (occurrence: US)
  Receive Date: 20240722
  Receipt Date: 20240722
  Transmission Date: 20241017
  Serious: Yes (Other)
  Sender: ELI LILLY AND CO
  Company Number: US-ELI_LILLY_AND_COMPANY-US202407007344

PATIENT

DRUGS (1)
  1. RALOXIFENE HYDROCHLORIDE [Suspect]
     Active Substance: RALOXIFENE HYDROCHLORIDE
     Indication: Osteopenia
     Dosage: UNK UNK, UNKNOWN
     Route: 065

REACTIONS (1)
  - Breast cancer [Unknown]
